FAERS Safety Report 21668024 (Version 1)
Quarter: 2022Q4

REPORT INFORMATION
  Report Type: Spontaneous
  Country: GR (occurrence: GR)
  Receive Date: 20221201
  Receipt Date: 20221201
  Transmission Date: 20230113
  Serious: Yes (Death)
  Sender: FDA-Public Use
  Company Number: GR-NOVOPROD-956855

PATIENT
  Age: 53 Year
  Sex: Male
  Weight: 153 kg

DRUGS (1)
  1. OZEMPIC [Suspect]
     Active Substance: SEMAGLUTIDE
     Indication: Type 2 diabetes mellitus
     Dosage: 0.5 MG, QW
     Route: 058

REACTIONS (2)
  - Cardio-respiratory arrest [Fatal]
  - Pruritus [Unknown]

NARRATIVE: CASE EVENT DATE: 20220922
